FAERS Safety Report 6413237-7 (Version None)
Quarter: 2009Q4

REPORT INFORMATION
  Report Type: 
  Country: None (occurrence: None)
  Receive Date: 20091026
  Receipt Date: 20091014
  Transmission Date: 20100525
  Serious: No
  Sender: FDA-Public Use
  Company Number: US-JNJFOC-20091006621

PATIENT
  Sex: Female
  Weight: 109.77 kg

DRUGS (11)
  1. DURAGESIC-100 [Suspect]
     Indication: BACK PAIN
     Route: 062
  2. ASPIRIN [Concomitant]
     Indication: ANTICOAGULANT THERAPY
     Route: 048
  3. KLONOPIN [Concomitant]
     Indication: SLEEP DISORDER
     Route: 048
  4. LASIX [Concomitant]
     Indication: SWELLING
     Route: 048
  5. POTASSIUM CHLORIDE [Concomitant]
     Indication: SWELLING
     Route: 048
  6. ZOLOFT [Concomitant]
     Indication: DEPRESSION
     Route: 048
  7. XENICAL [Concomitant]
     Indication: CONSTIPATION
     Route: 048
  8. NEURONTIN [Concomitant]
     Indication: NERVE BLOCK
     Route: 048
  9. SOMA [Concomitant]
     Indication: MUSCLE DISORDER
     Dosage: 4-6 TIMES A DAY
     Route: 048
  10. LORTABS (ACETAMINOPHEN W/HYDROCODONE BITARTRATE) [Concomitant]
     Indication: PAIN
     Dosage: 10/500 MG 4 TO 8 TIMES A DAY
     Route: 048
  11. BENADRYL [Concomitant]
     Indication: MULTIPLE ALLERGIES
     Route: 048

REACTIONS (1)
  - INAPPROPRIATE SCHEDULE OF DRUG ADMINISTRATION [None]
